FAERS Safety Report 7058830-6 (Version None)
Quarter: 2010Q4

REPORT INFORMATION
  Report Type: 
  Country: None (occurrence: None)
  Receive Date: 20101022
  Receipt Date: 20101013
  Transmission Date: 20110411
  Serious: Yes (Hospitalization)
  Sender: FDA-Public Use
  Company Number: CA-ABBOTT-10P-028-0678347-00

PATIENT
  Sex: Female

DRUGS (1)
  1. KALETRA [Suspect]
     Indication: ANTIRETROVIRAL THERAPY
     Dosage: 4-200/50MG TABS DAILY

REACTIONS (4)
  - ABDOMINAL INFECTION [None]
  - CARDIAC DISORDER [None]
  - DIARRHOEA [None]
  - HAEMOGLOBIN DECREASED [None]
